FAERS Safety Report 23296278 (Version 1)
Quarter: 2023Q4

REPORT INFORMATION
  Report Type: Spontaneous
  Country: US (occurrence: US)
  Receive Date: 20231214
  Receipt Date: 20231214
  Transmission Date: 20240110
  Serious: Yes (Hospitalization)
  Sender: FDA-Public Use
  Company Number: US-APOTEX-2023AP017834

PATIENT
  Age: 47 Year
  Sex: Female

DRUGS (2)
  1. MODAFINIL [Suspect]
     Active Substance: MODAFINIL
     Indication: Narcolepsy
     Dosage: UNK
     Route: 065
  2. MODAFINIL [Suspect]
     Active Substance: MODAFINIL
     Indication: Cataplexy
     Dosage: UNK
     Route: 065

REACTIONS (2)
  - Mania [Unknown]
  - Urine odour abnormal [Unknown]
